FAERS Safety Report 11782968 (Version 1)
Quarter: 2015Q4

REPORT INFORMATION
  Report Type: Spontaneous
  Country: US (occurrence: US)
  Receive Date: 20151127
  Receipt Date: 20151127
  Transmission Date: 20160305
  Serious: No
  Sender: FDA-Public Use
  Company Number: US-009507513-1511USA003776

PATIENT
  Age: 60 Year
  Sex: Female

DRUGS (1)
  1. FOSAMAX [Suspect]
     Active Substance: ALENDRONATE SODIUM
     Indication: OSTEOPOROSIS
     Dosage: STRENGTH, DOSE: NOT REPORTED, FREQUENCY: ONCE A DAY (QD)
     Route: 048
     Dates: start: 2000, end: 2000

REACTIONS (1)
  - Oesophageal discomfort [Recovered/Resolved]

NARRATIVE: CASE EVENT DATE: 2000
